FAERS Safety Report 5369077-3 (Version None)
Quarter: 2007Q2

REPORT INFORMATION
  Report Type: 
  Country: None (occurrence: None)
  Receive Date: 20070625
  Receipt Date: 20070205
  Transmission Date: 20071010
  Serious: No
  Sender: FDA-Public Use
  Company Number: US-ASTRAZENECA-2007UW02423

PATIENT
  Age: 80 Year
  Sex: Female
  Weight: 59.4 kg

DRUGS (4)
  1. CRESTOR [Suspect]
     Indication: BLOOD CHOLESTEROL INCREASED
     Route: 048
     Dates: start: 20051201
  2. CARTIA XT [Concomitant]
  3. TOPROL-XL [Concomitant]
     Route: 048
  4. LEVOXINE [Concomitant]

REACTIONS (1)
  - NIGHTMARE [None]
